FAERS Safety Report 6358977-3 (Version None)
Quarter: 2009Q3

REPORT INFORMATION
  Report Type: 
  Country: None (occurrence: None)
  Receive Date: 20090914
  Receipt Date: 20090901
  Transmission Date: 20100115
  Serious: Yes (Hospitalization)
  Sender: FDA-Public Use
  Company Number: FABR-1000939

PATIENT
  Age: 29 Year
  Sex: Male
  Weight: 82 kg

DRUGS (10)
  1. FABRAZYME [Suspect]
     Indication: FABRY'S DISEASE
     Dosage: 1 MG/KG, INTRAVENOUS
     Route: 042
     Dates: start: 20081118
  2. FABRAZYME [Suspect]
  3. ATORVASTATIN CALCIUM [Concomitant]
  4. QUETIAPINE FUMARATE [Concomitant]
  5. MIRTAZAPINE [Concomitant]
  6. CITALOPRAM HYDROBROMIDE [Concomitant]
  7. TYLENOL NO.2 (CAFFEINE, CODEINE PHOSPHATE, PARACETAMOL) [Concomitant]
  8. PREDNISONE TAB [Concomitant]
  9. DIPHENHYDRAMINE HCL [Concomitant]
  10. HYDROCORTONE [Concomitant]

REACTIONS (4)
  - ACUTE HEPATIC FAILURE [None]
  - BLOOD IRON INCREASED [None]
  - DRUG ABUSE [None]
  - HEPATITIS FULMINANT [None]
